FAERS Safety Report 18195029 (Version 2)
Quarter: 2020Q3

REPORT INFORMATION
  Report Type: Report from Study
  Country: GB (occurrence: GB)
  Receive Date: 20200825
  Receipt Date: 20200827
  Transmission Date: 20201103
  Serious: Yes (Other)
  Sender: FDA-Public Use
  Company Number: NVSC2020GB232427

PATIENT
  Sex: Female

DRUGS (1)
  1. OMNITROPE [Suspect]
     Active Substance: SOMATROPIN
     Indication: GROWTH HORMONE DEFICIENCY
     Dosage: 0.5 MG, QD (ROUTE AS DIRECTED)
     Route: 065

REACTIONS (5)
  - Dementia [Unknown]
  - Product dose omission issue [Unknown]
  - Hypopituitarism [Unknown]
  - Product quality issue [Unknown]
  - Device breakage [Unknown]
